FAERS Safety Report 4699600-3 (Version None)
Quarter: 2005Q2

REPORT INFORMATION
  Report Type: 
  Country: None (occurrence: None)
  Receive Date: 20050623
  Receipt Date: 20050613
  Transmission Date: 20051028
  Serious: Yes (Death)
  Sender: FDA-Public Use
  Company Number: 2005089676

PATIENT
  Age: 86 Year

DRUGS (4)
  1. ARTHROTEC [Suspect]
     Indication: ILL-DEFINED DISORDER
     Dosage: 100 MG (50 MG, 2 IN 1 D),ORAL
     Route: 048
  2. CO-CODAMOL (CODEINE PHOSPHATE, PARACETAMOL) [Concomitant]
  3. FERROUS SULPHATE (FERROUS SULFATE) [Concomitant]
  4. VITAMIN B12 (VITAMIN B12) [Concomitant]

REACTIONS (1)
  - GASTROINTESTINAL HAEMORRHAGE [None]
